FAERS Safety Report 6901842-0 (Version None)
Quarter: 2010Q3

REPORT INFORMATION
  Report Type: 
  Country: None (occurrence: None)
  Receive Date: 20100802
  Receipt Date: 20100802
  Transmission Date: 20110219
  Serious: Yes (Other)
  Sender: FDA-Public Use
  Company Number: None

PATIENT
  Sex: Male
  Weight: 67.1324 kg

DRUGS (1)
  1. CETIRIZINE HCL [Suspect]
     Indication: MULTIPLE ALLERGIES
     Dosage: 10MG 1 PO
     Route: 048
     Dates: start: 20100501, end: 20100722

REACTIONS (2)
  - ALANINE AMINOTRANSFERASE INCREASED [None]
  - ASPARTATE AMINOTRANSFERASE INCREASED [None]
